FAERS Safety Report 8372480-0 (Version None)
Quarter: 2012Q2

REPORT INFORMATION
  Report Type: 
  Country: None (occurrence: None)
  Receive Date: 20120521
  Receipt Date: 20120509
  Transmission Date: 20120825
  Serious: Yes (Hospitalization)
  Sender: FDA-Public Use
  Company Number: US-JNJFOC-20120510648

PATIENT
  Sex: Female
  Weight: 52.2 kg

DRUGS (3)
  1. HUMIRA [Concomitant]
     Dates: start: 20070416, end: 20100616
  2. HUMIRA [Concomitant]
     Dates: start: 20120107, end: 20120301
  3. REMICADE [Suspect]
     Indication: INFLAMMATORY BOWEL DISEASE
     Route: 042
     Dates: start: 20060703

REACTIONS (1)
  - WOUND DEHISCENCE [None]
